FAERS Safety Report 18871151 (Version 1)
Quarter: 2021Q1

REPORT INFORMATION
  Report Type: Other
  Country: DE (occurrence: DE)
  Receive Date: 20210210
  Receipt Date: 20210210
  Transmission Date: 20210420
  Serious: Yes (Congenital Anomaly, Other)
  Sender: FDA-Public Use
  Company Number: DE-MACLEODS PHARMA UK LTD-MAC2021030067

PATIENT

DRUGS (7)
  1. ESTRIFAM [ESTRADIOL;ESTRIOL] [Concomitant]
     Active Substance: ESTRADIOL\ESTRIOL
     Indication: PRODUCT USED FOR UNKNOWN INDICATION
     Dosage: 0. ? 12. GESTATIONAL WEEK, 1 {TRIMESTER}
     Route: 064
  2. L?THYROXIN [Concomitant]
     Active Substance: LEVOTHYROXINE SODIUM
     Indication: PRODUCT USED FOR UNKNOWN INDICATION
     Dosage: 0. ? 36.3. GESTATIONAL WEEK, 1 {TRIMESTER}, 50 [UG/D ]
     Route: 064
  3. PROGESTERONE. [Concomitant]
     Active Substance: PROGESTERONE
     Indication: PRODUCT USED FOR UNKNOWN INDICATION
     Dosage: 4. ? 12. GESTATIONAL WEEK, 1 {TRIMESTER}
     Route: 064
  4. ESCITALOPRAM [Suspect]
     Active Substance: ESCITALOPRAM OXALATE
     Indication: PRODUCT USED FOR UNKNOWN INDICATION
     Dosage: 0. ? 36.3. GESTATIONAL WEEK, 1 {TRIMESTER}
     Route: 064
  5. OXYBUTYNIN. [Suspect]
     Active Substance: OXYBUTYNIN CHLORIDE
     Indication: PRODUCT USED FOR UNKNOWN INDICATION
     Dosage: 0. ? 36.3. GESTATIONAL WEEK,  1 {TRIMESTER}
     Route: 064
  6. ENOXAPARIN [Concomitant]
     Active Substance: ENOXAPARIN
     Indication: PRODUCT USED FOR UNKNOWN INDICATION
     Dosage: 0. ? 29. GESTATIONAL WEEK, 1 {TRIMESTER}
     Route: 064
  7. DEXAMETHASONE. [Concomitant]
     Active Substance: DEXAMETHASONE
     Indication: PRODUCT USED FOR UNKNOWN INDICATION
     Dosage: 0. ? 6. GESTATIONAL WEEK, PROBABLY FOR FEMALE INFERTILIY OR PROPHYLAXIS OF ABORTION
     Route: 064

REACTIONS (2)
  - Foetal exposure during pregnancy [Unknown]
  - Talipes [Unknown]
